FAERS Safety Report 9138239 (Version 1)
Quarter: 2013Q1

REPORT INFORMATION
  Report Type: Spontaneous
  Country: US (occurrence: US)
  Receive Date: 20130305
  Receipt Date: 20130305
  Transmission Date: 20140127
  Serious: Yes (Hospitalization)
  Sender: FDA-Public Use
  Company Number: US-AMGEN-USASP2013014519

PATIENT
  Age: 73 Year
  Sex: Female

DRUGS (2)
  1. ENBREL [Suspect]
     Indication: RHEUMATOID ARTHRITIS
     Dosage: 50 MG, QWK
     Dates: start: 20120314, end: 20120530
  2. METHOTREXATE [Concomitant]
     Dosage: UNK
     Dates: end: 20120530

REACTIONS (2)
  - Dyspnoea [Unknown]
  - Drug ineffective [Unknown]
